FAERS Safety Report 8071241-X (Version None)
Quarter: 2012Q1

REPORT INFORMATION
  Report Type: 
  Country: None (occurrence: None)
  Receive Date: 20120125
  Receipt Date: 20120117
  Transmission Date: 20120608
  Serious: Yes (Hospitalization)
  Sender: FDA-Public Use
  Company Number: US-NAPPMUNDI-USA-2011-0079205

PATIENT
  Sex: Female
  Weight: 44.444 kg

DRUGS (15)
  1. OSTEO BI-FLEX [Concomitant]
     Indication: PRODUCT USED FOR UNKNOWN INDICATION
     Dosage: UNK, BID
  2. PREDNISOLONE ACETATE [Concomitant]
     Indication: PRODUCT USED FOR UNKNOWN INDICATION
     Dosage: 0.12 %, UNK
  3. BUTRANS [Suspect]
     Indication: SPINAL OSTEOARTHRITIS
     Dosage: 5 MCG, Q1H
     Route: 062
     Dates: start: 20111117, end: 20111118
  4. COZAAR [Concomitant]
     Indication: PRODUCT USED FOR UNKNOWN INDICATION
     Dosage: 50 MG, BID
  5. GABAPENTIN [Concomitant]
     Indication: PRODUCT USED FOR UNKNOWN INDICATION
     Dosage: 100 MG, HS
  6. PANCRELIPASE [Concomitant]
     Indication: PRODUCT USED FOR UNKNOWN INDICATION
     Dosage: 4500 UNIT, AC OR BEFORE SNACKS
  7. ZOLOFT [Concomitant]
     Indication: PRODUCT USED FOR UNKNOWN INDICATION
     Dosage: 100 MG, UNK
  8. LOSARTAN POTASSIUM [Concomitant]
     Indication: PRODUCT USED FOR UNKNOWN INDICATION
     Dosage: 50 MG, UNK
  9. VITAMIN D [Concomitant]
     Indication: PRODUCT USED FOR UNKNOWN INDICATION
     Dosage: 1000 UNIT, UNK
  10. SERTRALINE HYDROCHLORIDE [Concomitant]
     Indication: PRODUCT USED FOR UNKNOWN INDICATION
     Dosage: 100 MG, DAILY
     Route: 048
  11. ZOLEDRONOC ACID [Concomitant]
     Indication: PRODUCT USED FOR UNKNOWN INDICATION
     Dosage: 5 MG, ANNUALLY
  12. ACIPHEX [Concomitant]
     Indication: PRODUCT USED FOR UNKNOWN INDICATION
     Dosage: 20 MG, UNK
  13. VITAMIN B12                        /00056201/ [Concomitant]
     Indication: PRODUCT USED FOR UNKNOWN INDICATION
     Dosage: 500 MCG, UNK
  14. LABETALOL HYDROCHLORIDE [Concomitant]
     Indication: PRODUCT USED FOR UNKNOWN INDICATION
     Dosage: 100 MG, BID
     Route: 048
  15. METAMUCIL                          /00029101/ [Concomitant]
     Indication: PRODUCT USED FOR UNKNOWN INDICATION
     Dosage: 28.3 %, UNK

REACTIONS (5)
  - ABDOMINAL PAIN [None]
  - PANCREATITIS CHRONIC [None]
  - FEELING ABNORMAL [None]
  - TREMOR [None]
  - HALLUCINATION [None]
